FAERS Safety Report 7203733-7 (Version None)
Quarter: 2010Q4

REPORT INFORMATION
  Report Type: 
  Country: None (occurrence: None)
  Receive Date: 20101230
  Receipt Date: 20101221
  Transmission Date: 20110411
  Serious: Yes (Hospitalization, Other)
  Sender: FDA-Public Use
  Company Number: BR-ASTRAZENECA-2010SE60439

PATIENT
  Age: 93 Year
  Sex: Female
  Weight: 52 kg

DRUGS (4)
  1. ATACAND [Suspect]
     Indication: HYPERTENSION
     Route: 048
     Dates: start: 20070101
  2. SELOZOK [Suspect]
     Route: 048
     Dates: start: 20101001
  3. CRESTOR [Suspect]
     Indication: HYPERCHOLESTEROLAEMIA
     Route: 048
     Dates: start: 20101001
  4. ASPIRIN [Concomitant]
     Indication: CARDIOVASCULAR DISORDER
     Route: 048

REACTIONS (2)
  - HAEMORRHAGE [None]
  - MYOCARDIAL INFARCTION [None]
